FAERS Safety Report 20862677 (Version 1)
Quarter: 2022Q2

REPORT INFORMATION
  Report Type: Spontaneous
  Country: CN (occurrence: CN)
  Receive Date: 20220523
  Receipt Date: 20220523
  Transmission Date: 20220721
  Serious: Yes (Life-Threatening, Other)
  Sender: FDA-Public Use
  Company Number: CN-PFIZER INC-202200713844

PATIENT
  Age: 58 Year
  Sex: Male
  Weight: 70 kg

DRUGS (10)
  1. EPIRUBICIN [Suspect]
     Active Substance: EPIRUBICIN
     Indication: Non-Hodgkin^s lymphoma
     Dosage: 19.000 MG, 1X/DAY
     Dates: start: 20220422, end: 20220425
  2. ETOPOSIDE [Suspect]
     Active Substance: ETOPOSIDE
     Indication: Non-Hodgkin^s lymphoma
     Dosage: 90.000 MG, 1X/DAY
     Route: 041
     Dates: start: 20220422, end: 20220425
  3. RITUXIMAB [Suspect]
     Active Substance: RITUXIMAB
     Indication: Non-Hodgkin^s lymphoma
     Dosage: 200.000 MG, 1X/DAY
     Route: 041
     Dates: start: 20220422, end: 20220422
  4. RITUXIMAB [Suspect]
     Active Substance: RITUXIMAB
     Dosage: 500 MG, 1X/DAY
     Route: 041
     Dates: start: 20220422, end: 20220422
  5. CYCLOPHOSPHAMIDE [Suspect]
     Active Substance: CYCLOPHOSPHAMIDE
     Indication: Non-Hodgkin^s lymphoma
     Dosage: 1.200 G, 1X/DAY
     Route: 041
     Dates: start: 20220427, end: 20220427
  6. VINDESINE [Suspect]
     Active Substance: VINDESINE
     Indication: Non-Hodgkin^s lymphoma
     Dosage: 1.000 MG, 1X/DAY
     Dates: start: 20220422, end: 20220425
  7. SODIUM CHLORIDE [Concomitant]
     Active Substance: SODIUM CHLORIDE
     Indication: Vehicle solution use
     Dosage: 250.000 ML, 1X/DAY
     Route: 041
     Dates: start: 20220422, end: 20220422
  8. SODIUM CHLORIDE [Concomitant]
     Active Substance: SODIUM CHLORIDE
     Dosage: 500 ML, 1X/DAY
     Route: 041
     Dates: start: 20220422, end: 20220427
  9. SODIUM CHLORIDE [Concomitant]
     Active Substance: SODIUM CHLORIDE
     Dosage: 48.000 ML, 1X/DAY
     Dates: start: 20220422, end: 20220425
  10. WATER [Concomitant]
     Active Substance: WATER
     Indication: Vehicle solution use
     Dosage: 48.000 ML, 1X/DAY
     Dates: start: 20220422, end: 20220425

REACTIONS (1)
  - Myelosuppression [Recovering/Resolving]

NARRATIVE: CASE EVENT DATE: 20220503
